FAERS Safety Report 8503405-2 (Version None)
Quarter: 2012Q3

REPORT INFORMATION
  Report Type: 
  Country: None (occurrence: None)
  Receive Date: 20120711
  Receipt Date: 20120628
  Transmission Date: 20120928
  Serious: No
  Sender: FDA-Public Use
  Company Number: US-ASTRAZENECA-2012SE31768

PATIENT
  Age: 61 Year
  Sex: Female
  Weight: 104.3 kg

DRUGS (12)
  1. ZANTAC [Concomitant]
  2. AS NEEDED MEDICATION [Concomitant]
  3. PRILOSEC OTC [Suspect]
     Route: 048
  4. PAIN MEDICATION [Concomitant]
     Indication: PAIN
  5. REGULAR MEDICATION [Concomitant]
  6. ACIPHEX [Concomitant]
  7. PRILOSEC [Suspect]
     Route: 048
  8. HIGH BLOOD PRESSURE MEDICATION [Concomitant]
     Indication: HYPERTENSION
  9. TAGAMET [Concomitant]
  10. NEXIUM [Suspect]
     Indication: GASTROOESOPHAGEAL REFLUX DISEASE
     Route: 048
  11. NEXIUM [Suspect]
     Route: 048
  12. ANTIINFLAMMATORY [Concomitant]
     Indication: BACK DISORDER

REACTIONS (7)
  - IRRITABLE BOWEL SYNDROME [None]
  - HYPERSENSITIVITY [None]
  - PAIN IN EXTREMITY [None]
  - DYSPHONIA [None]
  - DRUG INEFFECTIVE [None]
  - DIABETES MELLITUS [None]
  - BACK DISORDER [None]
